FAERS Safety Report 4844940-8 (Version None)
Quarter: 2005Q4

REPORT INFORMATION
  Report Type: 
  Country: None (occurrence: None)
  Receive Date: 20051205
  Receipt Date: 20051123
  Transmission Date: 20060501
  Serious: Yes (Hospitalization)
  Sender: FDA-Public Use
  Company Number: FR-BRISTOL-MYERS SQUIBB COMPANY-13194782

PATIENT
  Age: 43 Year
  Sex: Female

DRUGS (6)
  1. FUNGIZONE [Suspect]
     Route: 042
     Dates: start: 20050515, end: 20050602
  2. PARACETAMOL [Suspect]
     Route: 048
     Dates: start: 20050608
  3. SMECTA [Suspect]
     Dates: start: 20050608
  4. FOSCAVIR [Suspect]
     Route: 042
     Dates: start: 20050608, end: 20050616
  5. WELLVONE [Suspect]
     Dates: start: 20050602
  6. NEXIUM [Suspect]
     Dates: start: 20050608

REACTIONS (1)
  - RENAL TUBULAR DISORDER [None]
